FAERS Safety Report 6977012-7 (Version None)
Quarter: 2010Q3

REPORT INFORMATION
  Report Type: 
  Country: None (occurrence: None)
  Receive Date: 20100910
  Receipt Date: 20100906
  Transmission Date: 20110219
  Serious: Yes (Hospitalization)
  Sender: FDA-Public Use
  Company Number: DE-ROCHE-725549

PATIENT
  Sex: Male

DRUGS (3)
  1. TOCILIZUMAB [Suspect]
     Indication: RHEUMATOID ARTHRITIS
     Dosage: LAST DOSE PRIOR TO SAE: 9 JUNE 2010
     Route: 042
     Dates: start: 20060622, end: 20100609
  2. MTX [Concomitant]
     Dates: start: 20050217
  3. FOLIC ACID [Concomitant]
     Dates: start: 20050217

REACTIONS (1)
  - PROSTATE CANCER [None]
